FAERS Safety Report 7520707-7 (Version None)
Quarter: 2011Q2

REPORT INFORMATION
  Report Type: 
  Country: None (occurrence: None)
  Receive Date: 20110603
  Receipt Date: 20110526
  Transmission Date: 20111010
  Serious: Yes (Hospitalization)
  Sender: FDA-Public Use
  Company Number: JP-BRISTOL-MYERS SQUIBB COMPANY-15793276

PATIENT
  Age: 36 Year
  Sex: Male

DRUGS (2)
  1. IRBESARTAN [Suspect]
     Indication: ESSENTIAL HYPERTENSION
     Dosage: STOPPED ON 17JAN11(302DAYS),RESTART ON 18JAN11-28MAR11(70DAYS).
     Route: 048
     Dates: start: 20101116, end: 20110328
  2. AMLODIPINE BESYLATE [Suspect]
     Indication: ESSENTIAL HYPERTENSION
     Dosage: 13OCT10-15NOV10,16NOV10-17JAN11(302DAYS),18JAN11-28-MAR11(70DAYS)10MG DOSE
     Route: 048
     Dates: start: 20101013, end: 20110328

REACTIONS (1)
  - COLITIS ULCERATIVE [None]
